FAERS Safety Report 4333769-5 (Version None)
Quarter: 2004Q2

REPORT INFORMATION
  Report Type: 
  Country: None (occurrence: None)
  Receive Date: 20040402
  Receipt Date: 20040317
  Transmission Date: 20050107
  Serious: Yes (Hospitalization)
  Sender: FDA-Public Use
  Company Number: DSA_24104_2004

PATIENT
  Sex: Female

DRUGS (13)
  1. LORAZEPAM [Suspect]
     Indication: DEPRESSION
  2. ANAFRANIL [Suspect]
     Indication: DEPRESSION
     Dosage: 75 MG BID PO
     Route: 048
  3. ORUGESIC [Concomitant]
  4. TRANXENE [Suspect]
     Indication: DEPRESSION
     Dosage: 50 MG BID PO
     Route: 048
  5. XANAX [Suspect]
     Indication: DEPRESSION
     Dosage: 0.5 MG BID PO
     Route: 048
  6. ACETAMINOPHEN [Concomitant]
  7. MYOLASTAN [Concomitant]
  8. MORPHINE [Concomitant]
  9. MOPRAL [Concomitant]
  10. DUPHALAC [Concomitant]
  11. SORBITOL [Concomitant]
  12. TRIFLUCAN [Concomitant]
  13. PRIMPERAN INJ [Concomitant]

REACTIONS (4)
  - COMPLICATIONS OF MATERNAL EXPOSURE TO THERAPEUTIC DRUGS [None]
  - DRUG EXPOSURE DURING PREGNANCY [None]
  - POLYHYDRAMNIOS [None]
  - PREMATURE BABY [None]
